FAERS Safety Report 5504212-5 (Version None)
Quarter: 2007Q4

REPORT INFORMATION
  Report Type: 
  Country: None (occurrence: None)
  Receive Date: 20071030
  Receipt Date: 20071015
  Transmission Date: 20080405
  Serious: Yes (Other)
  Sender: FDA-Public Use
  Company Number: CIP07002195

PATIENT
  Age: 48 Year
  Sex: Female

DRUGS (2)
  1. MACROBID [Suspect]
     Indication: URINARY TRACT INFECTION
     Dosage: 100 MG, ORAL
     Route: 048
     Dates: start: 19950101
  2. CENTRUM/00554501/(MINERALS NOS, VITAMIN NOS) [Concomitant]

REACTIONS (3)
  - DRUG HYPERSENSITIVITY [None]
  - DYSPNOEA [None]
  - PULMONARY HYPERTENSION [None]
